FAERS Safety Report 9657900 (Version 1)
Quarter: 2013Q4

REPORT INFORMATION
  Report Type: Spontaneous
  Country: US (occurrence: None)
  Receive Date: 20131029
  Receipt Date: 20131029
  Transmission Date: 20140711
  Serious: Yes (Other)
  Sender: FDA-Public Use
  Company Number: AUR-APL-2013-09003

PATIENT
  Sex: Male

DRUGS (2)
  1. GABAPENTIN [Suspect]
     Indication: OFF LABEL USE
     Dosage: UNKNOWN
  2. GABAPENTIN [Suspect]
     Dosage: UNKNOWN

REACTIONS (1)
  - Unevaluable event [None]
